FAERS Safety Report 19936762 (Version 2)
Quarter: 2022Q2

REPORT INFORMATION
  Report Type: Spontaneous
  Country: DE (occurrence: DE)
  Receive Date: 20211009
  Receipt Date: 20220611
  Transmission Date: 20220720
  Serious: Yes (Other)
  Sender: FDA-Public Use
  Company Number: DE-NOVARTISPH-NVSC2021DE223316

PATIENT
  Age: 5 Year
  Sex: Female

DRUGS (4)
  1. MEKINIST [Suspect]
     Active Substance: TRAMETINIB DIMETHYL SULFOXIDE
     Indication: Neurofibromatosis
     Dosage: 0.03 MG/KG, QD
     Route: 065
     Dates: start: 202004
  2. MEKINIST [Suspect]
     Active Substance: TRAMETINIB DIMETHYL SULFOXIDE
     Indication: Optic glioma
     Dosage: 0.03 MG/KG, QD
     Route: 065
  3. MEKINIST [Suspect]
     Active Substance: TRAMETINIB DIMETHYL SULFOXIDE
     Dosage: 0.025 MG/KG, QD (BODY WEIGHT)
     Route: 065
     Dates: start: 202004
  4. MEKINIST [Suspect]
     Active Substance: TRAMETINIB DIMETHYL SULFOXIDE
     Dosage: 0.025 MG/KG, QD (BODY WEIGHT)
     Route: 065

REACTIONS (6)
  - Lymphoedema [Not Recovered/Not Resolved]
  - Optic glioma [Unknown]
  - Malignant neoplasm progression [Unknown]
  - Neurofibromatosis [Unknown]
  - Product use issue [Unknown]
  - Product use in unapproved indication [Unknown]

NARRATIVE: CASE EVENT DATE: 20200401
